FAERS Safety Report 14243314 (Version 3)
Quarter: 2018Q1

REPORT INFORMATION
  Report Type: Spontaneous
  Country: US (occurrence: US)
  Receive Date: 20171201
  Receipt Date: 20180219
  Transmission Date: 20180508
  Serious: Yes (Other)
  Sender: FDA-Public Use
  Company Number: US-009507513-1711USA002096

PATIENT
  Age: 21 Year
  Sex: Female
  Weight: 57.14 kg

DRUGS (1)
  1. NEXPLANON [Suspect]
     Active Substance: ETONOGESTREL
     Indication: CONTRACEPTION
     Dosage: 68 MG, CONT.
     Route: 059
     Dates: start: 201501, end: 20171103

REACTIONS (3)
  - Complication of device removal [Recovered/Resolved]
  - Incision site complication [Recovered/Resolved with Sequelae]
  - Device deployment issue [Recovered/Resolved]

NARRATIVE: CASE EVENT DATE: 201501
